FAERS Safety Report 6353330-0 (Version None)
Quarter: 2009Q3

REPORT INFORMATION
  Report Type: 
  Country: None (occurrence: None)
  Receive Date: 20090912
  Receipt Date: 20080903
  Transmission Date: 20100115
  Serious: No
  Sender: FDA-Public Use
  Company Number: US-BAUSCH-2008BL003824

PATIENT
  Age: 70 Year
  Sex: Female

DRUGS (5)
  1. TETRACYCLINE HYDROCHLORIDE [Suspect]
     Indication: OPHTHALMOLOGICAL EXAMINATION
     Route: 047
     Dates: start: 20080815, end: 20080815
  2. TROPICAMIDE [Suspect]
     Indication: OPHTHALMOLOGICAL EXAMINATION
     Route: 047
     Dates: start: 20080815, end: 20080815
  3. FALCON PHENYLEPHRINE HYDROCHLORIDE OPHTHALMIC SOLUTION [Suspect]
     Indication: OPHTHALMOLOGICAL EXAMINATION
     Route: 047
     Dates: start: 20080815, end: 20080815
  4. THYROID TAB [Concomitant]
     Indication: THYROID DISORDER
     Route: 048
  5. ESTRIOL [Concomitant]
     Indication: HORMONE REPLACEMENT THERAPY
     Route: 067

REACTIONS (5)
  - ASTHENIA [None]
  - DIZZINESS [None]
  - DRUG EFFECT PROLONGED [None]
  - MALAISE [None]
  - PALPITATIONS [None]
